FAERS Safety Report 11230651 (Version 2)
Quarter: 2015Q3

REPORT INFORMATION
  Report Type: Spontaneous
  Country: US (occurrence: US)
  Receive Date: 20150701
  Receipt Date: 20150824
  Transmission Date: 20151125
  Serious: No
  Sender: FDA-Public Use
  Company Number: US-PFIZER INC-2015216056

PATIENT
  Age: 57 Year
  Sex: Female
  Weight: 60 kg

DRUGS (2)
  1. EXEMESTANE. [Suspect]
     Active Substance: EXEMESTANE
     Indication: ANTIOESTROGEN THERAPY
     Dosage: 25 MG, 1X/DAY
  2. AROMASIN [Suspect]
     Active Substance: EXEMESTANE
     Indication: ANTIOESTROGEN THERAPY
     Dosage: 25 MG, 1X/DAY

REACTIONS (1)
  - Osteopenia [Unknown]

NARRATIVE: CASE EVENT DATE: 201103
